FAERS Safety Report 22383143 (Version 1)
Quarter: 2023Q2

REPORT INFORMATION
  Report Type: Spontaneous
  Country: CN (occurrence: CN)
  Receive Date: 20230530
  Receipt Date: 20230530
  Transmission Date: 20230722
  Serious: Yes (Other)
  Sender: FDA-Public Use
  Company Number: CN-PFIZER INC-PV202300093905

PATIENT
  Age: 26 Year
  Sex: Male

DRUGS (4)
  1. EPIRUBICIN [Suspect]
     Active Substance: EPIRUBICIN
     Indication: Hodgkin^s disease
     Dosage: 50 MG, 1X/DAY
     Route: 041
     Dates: start: 20230430, end: 20230430
  2. VINDESINE SULFATE [Suspect]
     Active Substance: VINDESINE SULFATE
     Indication: Hodgkin^s disease
     Dosage: 4 MG, 1X/DAY
     Route: 041
     Dates: start: 20230430, end: 20230430
  3. DACARBAZINE [Suspect]
     Active Substance: DACARBAZINE
     Indication: Hodgkin^s disease
     Dosage: 596 MG, 1X/DAY
     Route: 041
     Dates: start: 20230430, end: 20230430
  4. BLEOMYCIN HYDROCHLORIDE [Suspect]
     Active Substance: BLEOMYCIN HYDROCHLORIDE
     Indication: Hodgkin^s disease
     Dosage: 15 MG, 1X/DAY
     Route: 041
     Dates: start: 20230430, end: 20230430

REACTIONS (1)
  - Drug-induced liver injury [Recovering/Resolving]

NARRATIVE: CASE EVENT DATE: 20230510
